FAERS Safety Report 5368289-2 (Version None)
Quarter: 2007Q2

REPORT INFORMATION
  Report Type: 
  Country: None (occurrence: None)
  Receive Date: 20070620
  Receipt Date: 20070611
  Transmission Date: 20071010
  Serious: No
  Sender: FDA-Public Use
  Company Number: 233352K07USA

PATIENT
  Age: 61 Year
  Sex: Female

DRUGS (2)
  1. REBIF [Suspect]
     Indication: MULTIPLE SCLEROSIS
     Dosage: 44 MCG, 3IN 1 WEEKS, SUBCUTANEOUS
     Route: 058
     Dates: start: 20060426
  2. ADVIL LIQUI-GELS [Concomitant]

REACTIONS (1)
  - ROTATOR CUFF REPAIR [None]
